FAERS Safety Report 9384359 (Version 1)
Quarter: 2013Q3

REPORT INFORMATION
  Report Type: Report from Study
  Country: MX (occurrence: MX)
  Receive Date: 20130705
  Receipt Date: 20130705
  Transmission Date: 20140515
  Serious: Yes (Other)
  Sender: FDA-Public Use
  Company Number: PHHY2013MX070638

PATIENT
  Age: 55 Year
  Sex: Female

DRUGS (2)
  1. DIOVAN [Suspect]
     Indication: HYPERTENSION
     Dosage: 1 DF(80MG), DAILY
     Route: 048
     Dates: start: 2011
  2. FEMARA [Concomitant]
     Indication: NEOPLASM MALIGNANT
     Dosage: 1 UKN, DAILY

REACTIONS (2)
  - Osteoporosis [Unknown]
  - Expired drug administered [Unknown]
